FAERS Safety Report 23649793 (Version 3)
Quarter: 2025Q3

REPORT INFORMATION
  Report Type: Spontaneous
  Country: EU (occurrence: EU)
  Receive Date: 20240319
  Receipt Date: 20250804
  Transmission Date: 20251021
  Serious: Yes (Other)
  Sender: MERCK SHARP & DOHME LLC
  Company Number: None

PATIENT
  Age: 55 Year
  Sex: Female

DRUGS (1)
  1. PEMBROLIZUMAB [Suspect]
     Active Substance: PEMBROLIZUMAB
     Indication: Malignant melanoma
     Dosage: DOSE DESCRIPTION : 200 MG (FLAT DOSE) 3-WEEKLY?DAILY DOSE : 9.4 MILLIGRAM?REGIMEN DOSE : 200  MIL...

REACTIONS (5)
  - Adrenalitis [Unknown]
  - Immune-mediated hyperthyroidism [Unknown]
  - Immune-mediated thyroiditis [Unknown]
  - Primary adrenal insufficiency [Unknown]
  - Immune-mediated hypothyroidism [Unknown]
